FAERS Safety Report 5813989-0 (Version None)
Quarter: 2008Q3

REPORT INFORMATION
  Report Type: 
  Country: None (occurrence: None)
  Receive Date: 20080715
  Receipt Date: 20080702
  Transmission Date: 20090109
  Serious: Yes (Death)
  Sender: FDA-Public Use
  Company Number: 14740

PATIENT
  Age: 49 Year
  Sex: Female

DRUGS (1)
  1. MORPHINE SULFATE [Suspect]
     Indication: CANCER PAIN
     Dates: start: 20060601, end: 20061101

REACTIONS (1)
  - PHARMACEUTICAL PRODUCT COMPLAINT [None]
